FAERS Safety Report 15689989 (Version 1)
Quarter: 2018Q4

REPORT INFORMATION
  Report Type: Spontaneous
  Country: NO (occurrence: NO)
  Receive Date: 20181205
  Receipt Date: 20181205
  Transmission Date: 20190205
  Serious: Yes (Hospitalization)
  Sender: FDA-Public Use
  Company Number: NO-PFIZER INC-2018494848

PATIENT
  Age: 87 Year
  Sex: Female

DRUGS (9)
  1. XARELTO [Concomitant]
     Active Substance: RIVAROXABAN
     Dosage: UNK (DOSAGE WAS REDUCED)
     Dates: start: 20180918
  2. MYCOSTATIN [Concomitant]
     Active Substance: NYSTATIN
     Indication: ORAL FUNGAL INFECTION
     Dosage: 1 ML, 4X/DAY
     Route: 048
     Dates: start: 20180815
  3. NYCOPLUS MAGNESIUM [Concomitant]
     Dosage: 120 MG, EVERY 8 HOUR
     Route: 048
  4. SPIRIX [Concomitant]
     Active Substance: SPIRONOLACTONE
     Indication: HYPERTENSION
     Dosage: 12.5 MG, 1X/DAY
     Route: 048
  5. IDOFORM CLASSIC PLUS [Concomitant]
     Dosage: 1 DF, 2X/DAY
  6. METOPROLOL SANDOZ [METOPROLOL SUCCINATE] [Concomitant]
     Indication: ATRIAL FIBRILLATION
     Dosage: 25 MG, 1X/DAY
     Route: 048
  7. SOMAC [Concomitant]
     Active Substance: PANTOPRAZOLE SODIUM
     Indication: GASTRITIS
     Dosage: 40 MG, 1X/DAY
     Route: 048
  8. ZYVOXID [Suspect]
     Active Substance: LINEZOLID
     Indication: ENDOCARDITIS
     Dosage: 600 MG, EVERY 12 HOURS
     Route: 048
     Dates: start: 20180814, end: 20180904
  9. XARELTO [Concomitant]
     Active Substance: RIVAROXABAN
     Indication: ATRIAL FIBRILLATION
     Dosage: 20 MG, 1X/DAY
     Route: 048

REACTIONS (4)
  - Platelet count decreased [Recovering/Resolving]
  - Bone marrow failure [Recovering/Resolving]
  - Anaemia [Recovering/Resolving]
  - Reticulocyte percentage decreased [Recovering/Resolving]

NARRATIVE: CASE EVENT DATE: 20180903
